FAERS Safety Report 4537569-2 (Version None)
Quarter: 2004Q4

REPORT INFORMATION
  Report Type: 
  Country: None (occurrence: None)
  Receive Date: 20041214
  Receipt Date: 20040824
  Transmission Date: 20050328
  Serious: Yes (Other)
  Sender: FDA-Public Use
  Company Number: 10060591-P153502-1

PATIENT
  Age: 88 Year
  Sex: Male
  Weight: 71.2 kg

DRUGS (9)
  1. HEPARIN SODIUM 25,000 UNITS IN DEXTROSE 5% [Suspect]
     Indication: ANGINA PECTORIS
     Dosage: 1000 UNITS Q HR IV
     Route: 042
     Dates: start: 20040824, end: 20040824
  2. HEPARIN SODIUM 25,000 UNITS IN DEXTROSE 5% [Suspect]
     Indication: MYOCARDIAL INFARCTION
     Dosage: 1000 UNITS Q HR IV
     Route: 042
     Dates: start: 20040824, end: 20040824
  3. NITROGLYCERIN [Concomitant]
  4. HUMULIN 70/30 [Concomitant]
  5. ASPIRIN [Concomitant]
  6. SYNTHROID [Concomitant]
  7. DOCUSATE CA [Concomitant]
  8. ROCEPHIN [Concomitant]
  9. MORPHINE [Concomitant]

REACTIONS (1)
  - DRUG INEFFECTIVE [None]
